FAERS Safety Report 6935323-5 (Version None)
Quarter: 2010Q3

REPORT INFORMATION
  Report Type: 
  Country: None (occurrence: None)
  Receive Date: 20100823
  Receipt Date: 20100322
  Transmission Date: 20110219
  Serious: Yes (Hospitalization)
  Sender: FDA-Public Use
  Company Number: US-BAYER-200939101NA

PATIENT
  Age: 17 Year
  Sex: Female
  Weight: 117 kg

DRUGS (10)
  1. YAZ [Suspect]
     Indication: OVARIAN CYST
     Dosage: 3.0/0.03 MG 1 PER DAY
     Dates: start: 20080602, end: 20081215
  2. AMOXICILLIN [Concomitant]
  3. CEFACLOR [Concomitant]
     Indication: ACNE
  4. HYDROCODONE BITARTRATE [Concomitant]
  5. CLONIDINE [Concomitant]
     Indication: ATTENTION DEFICIT/HYPERACTIVITY DISORDER
     Dosage: 0.1 M
  6. DIPHENHYDRAMINE [Concomitant]
     Dosage: 25
  7. LAMICTAL [Concomitant]
     Indication: MOOD SWINGS
  8. SULFATRIM [Concomitant]
     Dosage: 800/100
  9. ALBUTEROL [Concomitant]
     Dosage: INHALATION
  10. TRAZODONE HCL [Concomitant]

REACTIONS (4)
  - ABDOMINAL PAIN UPPER [None]
  - CHOLECYSTITIS CHRONIC [None]
  - NAUSEA [None]
  - VOMITING [None]
